FAERS Safety Report 19597125 (Version 1)
Quarter: 2021Q3

REPORT INFORMATION
  Report Type: Spontaneous
  Country: US (occurrence: US)
  Receive Date: 20210721
  Receipt Date: 20210721
  Transmission Date: 20211014
  Serious: No
  Sender: FDA-Public Use
  Company Number: None

PATIENT

DRUGS (2)
  1. MIDAZOLAM HCL [Suspect]
     Active Substance: MIDAZOLAM HYDROCHLORIDE
     Dosage: ?          OTHER FREQUENCY:I.V. OR  I.M.;OTHER ROUTE:INJECTABLE?
  2. MIDAZOLAM HCL [Suspect]
     Active Substance: MIDAZOLAM HYDROCHLORIDE
     Dosage: ?          OTHER FREQUENCY:I.V. OR I.M.;OTHER ROUTE:INJECTABLE?

REACTIONS (1)
  - Product appearance confusion [None]
